FAERS Safety Report 5352108-4 (Version None)
Quarter: 2007Q2

REPORT INFORMATION
  Report Type: 
  Country: None (occurrence: None)
  Receive Date: 20070606
  Receipt Date: 20070524
  Transmission Date: 20071010
  Serious: Yes (Life-Threatening)
  Sender: FDA-Public Use
  Company Number: 2007VX001502

PATIENT
  Age: 78 Year
  Sex: Female

DRUGS (4)
  1. TOLCAPONE (TOLCAPONE) [Suspect]
     Indication: PARKINSON'S DISEASE
  2. L-DOPA (LEVODOPA) [Suspect]
  3. PRAMIPEXOLE DIHYDROCHLORIDE [Suspect]
  4. AZILECT (RASAGILINE MESYLATE) [Suspect]
     Indication: PARKINSON'S DISEASE
     Dosage: 1 MG;QD;

REACTIONS (4)
  - ATRIAL FIBRILLATION [None]
  - CARDIAC FAILURE [None]
  - HYPERTENSION [None]
  - TRICUSPID VALVE INCOMPETENCE [None]
